FAERS Safety Report 6257165-9 (Version None)
Quarter: 2009Q3

REPORT INFORMATION
  Report Type: 
  Country: None (occurrence: None)
  Receive Date: 20090706
  Receipt Date: 20090626
  Transmission Date: 20100115
  Serious: Yes (Other)
  Sender: FDA-Public Use
  Company Number: US-BAYER-200918361NA

PATIENT
  Age: 68 Year

DRUGS (2)
  1. CAMPATH [Suspect]
     Indication: CHRONIC LYMPHOCYTIC LEUKAEMIA
     Dosage: 11 DOSES ON A MONDAY, WEDNESDAY, FRIDAY SCHEDULE
     Route: 058
  2. CAMPATH [Suspect]
     Route: 058
     Dates: start: 20090413

REACTIONS (1)
  - NEUTROPHIL COUNT DECREASED [None]
